FAERS Safety Report 7385275-1 (Version None)
Quarter: 2011Q1

REPORT INFORMATION
  Report Type: 
  Country: None (occurrence: None)
  Receive Date: 20110330
  Receipt Date: 20100305
  Transmission Date: 20110831
  Serious: No
  Sender: FDA-Public Use
  Company Number: US-MYLANLABS-2010S1003947

PATIENT
  Sex: Male

DRUGS (2)
  1. EMSAM [Suspect]
     Indication: DEPRESSION
     Dosage: QD
     Route: 062
     Dates: start: 20091201
  2. LIPITOR [Concomitant]
     Indication: BLOOD CHOLESTEROL INCREASED

REACTIONS (2)
  - APPLICATION SITE RASH [None]
  - APPLICATION SITE PRURITUS [None]
